FAERS Safety Report 8482827 (Version 11)
Quarter: 2017Q3

REPORT INFORMATION
  Report Type: Spontaneous
  Country: US (occurrence: US)
  Receive Date: 20120329
  Receipt Date: 20170711
  Transmission Date: 20171128
  Serious: Yes (Hospitalization, Disabling, Other)
  Sender: FDA-Public Use
  Company Number: US-009507513-1203USA03322

PATIENT
  Sex: Female
  Weight: 62.6 kg

DRUGS (6)
  1. ALENDRONATE SODIUM. [Suspect]
     Active Substance: ALENDRONATE SODIUM
     Indication: OSTEOPOROSIS
  2. FOSAMAX [Suspect]
     Active Substance: ALENDRONATE SODIUM
     Indication: OSTEOPOROSIS
  3. FOSAMAX [Suspect]
     Active Substance: ALENDRONATE SODIUM
     Indication: OSTEOPOROSIS
  4. FOSAMAX [Suspect]
     Active Substance: ALENDRONATE SODIUM
     Indication: OSTEOPENIA
     Dosage: 70 MG, QW
     Route: 048
     Dates: start: 20040430, end: 2011
  5. ALENDRONATE SODIUM. [Suspect]
     Active Substance: ALENDRONATE SODIUM
     Indication: OSTEOPENIA
     Dosage: UNK
     Route: 048
     Dates: start: 200905, end: 201003
  6. FOSAMAX [Suspect]
     Active Substance: ALENDRONATE SODIUM
     Indication: OSTEOPENIA
     Dosage: 70 MG, QW
     Route: 048
     Dates: start: 20081028, end: 20110823

REACTIONS (110)
  - Atrophic vulvovaginitis [Unknown]
  - Intestinal polyp [Unknown]
  - Compression fracture [Unknown]
  - Hyperkalaemia [Unknown]
  - Tendon disorder [Unknown]
  - Escherichia infection [Unknown]
  - Radiculopathy [Not Recovered/Not Resolved]
  - Muscle spasms [Unknown]
  - Pain in jaw [Recovering/Resolving]
  - Back pain [Not Recovered/Not Resolved]
  - Spinal fusion surgery [Unknown]
  - Fracture nonunion [Unknown]
  - Arthropathy [Unknown]
  - Tendonitis [Unknown]
  - Haematuria [Not Recovered/Not Resolved]
  - Hepatic steatosis [Unknown]
  - Pancreatic disorder [Unknown]
  - Hyperparathyroidism [Unknown]
  - Spondylolisthesis [Unknown]
  - Mass [Unknown]
  - Diaphragmatic hernia [Unknown]
  - Muscular weakness [Not Recovered/Not Resolved]
  - Infection [Unknown]
  - Electrocardiogram ST segment abnormal [Unknown]
  - Osteomyelitis bacterial [Unknown]
  - Device failure [Unknown]
  - Gallbladder disorder [Unknown]
  - Decubitus ulcer [Recovered/Resolved]
  - Enterococcal infection [Unknown]
  - Open reduction of fracture [Unknown]
  - Osteoarthritis [Not Recovered/Not Resolved]
  - Blood urea increased [Not Recovered/Not Resolved]
  - Scoliosis [Unknown]
  - Anaemia [Unknown]
  - Renal cyst [Unknown]
  - Enzyme level increased [Unknown]
  - Subcutaneous abscess [Unknown]
  - Osteoporosis [Unknown]
  - Infection [Unknown]
  - Spinal disorder [Unknown]
  - Joint irrigation [Unknown]
  - Cataract operation [Unknown]
  - Complication associated with device [Unknown]
  - Osteoarthritis [Unknown]
  - Hypovolaemia [Unknown]
  - Metabolic syndrome [Unknown]
  - Coronary artery disease [Unknown]
  - Low turnover osteopathy [Unknown]
  - Haemorrhage [Unknown]
  - Acute kidney injury [Unknown]
  - Sepsis [Unknown]
  - Urinary tract infection [Unknown]
  - Procedural hypertension [Unknown]
  - Spinal decompression [Unknown]
  - Urinary tract infection [Unknown]
  - Tooth disorder [Unknown]
  - Metabolic acidosis [Unknown]
  - Pain [Unknown]
  - Influenza [Recovering/Resolving]
  - Polyneuropathy [Unknown]
  - Pain in extremity [Not Recovered/Not Resolved]
  - Muscle spasms [Unknown]
  - Stress fracture [Unknown]
  - Myocardial infarction [Unknown]
  - Temporomandibular joint syndrome [Unknown]
  - Tooth disorder [Unknown]
  - Spondyloarthropathy [Unknown]
  - Rotator cuff syndrome [Not Recovered/Not Resolved]
  - Sinusitis [Unknown]
  - Cardiac disorder [Unknown]
  - Chronic obstructive pulmonary disease [Unknown]
  - Rhinitis [Unknown]
  - Restless legs syndrome [Unknown]
  - Pruritus [Unknown]
  - Palpitations [Unknown]
  - Chronic kidney disease [Not Recovered/Not Resolved]
  - Sepsis [Unknown]
  - Osteomyelitis [Unknown]
  - Periodontal disease [Unknown]
  - Abscess [Unknown]
  - Vitamin D deficiency [Unknown]
  - Hyperkalaemia [Unknown]
  - Hyperlipidaemia [Not Recovered/Not Resolved]
  - Cartilage injury [Unknown]
  - Fibrocystic breast disease [Unknown]
  - Polymyalgia rheumatica [Not Recovered/Not Resolved]
  - Synovitis [Unknown]
  - Post procedural haematoma [Unknown]
  - Gastrooesophageal reflux disease [Not Recovered/Not Resolved]
  - End stage renal disease [Unknown]
  - Renal failure [Not Recovered/Not Resolved]
  - Anaemia [Unknown]
  - Arterial haemorrhage [Unknown]
  - Hypotension [Unknown]
  - Infection [Unknown]
  - Femur fracture [Unknown]
  - Tubulointerstitial nephritis [Unknown]
  - Temporal arteritis [Not Recovered/Not Resolved]
  - Asthma [Not Recovered/Not Resolved]
  - Large intestine polyp [Unknown]
  - Spinal compression fracture [Unknown]
  - Exostosis of jaw [Unknown]
  - Dyspepsia [Unknown]
  - Neck pain [Not Recovered/Not Resolved]
  - Femur fracture [Unknown]
  - Rheumatoid arthritis [Not Recovered/Not Resolved]
  - Urinary tract infection [Unknown]
  - Fall [Unknown]
  - Deafness [Unknown]
  - Lumbar radiculopathy [Unknown]

NARRATIVE: CASE EVENT DATE: 2004
